FAERS Safety Report 9519697 (Version 7)
Quarter: 2014Q2

REPORT INFORMATION
  Report Type: Report from Study
  Country: HU (occurrence: HU)
  Receive Date: 20130912
  Receipt Date: 20140602
  Transmission Date: 20141212
  Serious: Yes (Hospitalization)
  Sender: FDA-Public Use
  Company Number: HU-JNJFOC-20130803778

PATIENT
  Age: 7 Decade
  Sex: Female

DRUGS (3)
  1. STELARA [Suspect]
     Indication: PSORIASIS
     Dosage: DOSE 2
     Route: 058
     Dates: start: 20130403
  2. STELARA [Suspect]
     Indication: PSORIASIS
     Route: 058
     Dates: start: 20130826
  3. STELARA [Suspect]
     Indication: PSORIASIS
     Dosage: DOSE 2
     Route: 058
     Dates: start: 201305

REACTIONS (16)
  - Dermatitis bullous [Unknown]
  - Erysipelas [Recovering/Resolving]
  - Depression [Recovering/Resolving]
  - Cough [Recovering/Resolving]
  - Pain [Unknown]
  - Insomnia [Unknown]
  - Skin disorder [Unknown]
  - Feeling cold [Recovered/Resolved]
  - Pyrexia [Recovered/Resolved]
  - Mood swings [Recovering/Resolving]
  - Nasopharyngitis [Recovering/Resolving]
  - Pharyngitis [Recovering/Resolving]
  - Vocal cord inflammation [Recovering/Resolving]
  - Neuralgia [Recovering/Resolving]
  - Conjunctivitis [Recovered/Resolved]
  - Diplopia [Unknown]
